FAERS Safety Report 4530163-9 (Version None)
Quarter: 2004Q4

REPORT INFORMATION
  Report Type: 
  Country: None (occurrence: None)
  Receive Date: 20041215
  Receipt Date: 20041129
  Transmission Date: 20050328
  Serious: Yes (Hospitalization)
  Sender: FDA-Public Use
  Company Number: 205671

PATIENT
  Age: 36 Year
  Sex: Female
  Weight: 61.2356 kg

DRUGS (3)
  1. AVONEX [Suspect]
     Indication: MULTIPLE SCLEROSIS
     Dosage: SEE IMAGE
     Route: 030
     Dates: start: 20020101, end: 20040801
  2. AVONEX [Suspect]
     Indication: MULTIPLE SCLEROSIS
     Dosage: SEE IMAGE
     Route: 030
     Dates: start: 20040801
  3. TEGRETOL [Concomitant]

REACTIONS (7)
  - ANAEMIA [None]
  - CONDITION AGGRAVATED [None]
  - PAIN [None]
  - TREMOR [None]
  - UTERINE HAEMORRHAGE [None]
  - UTERINE LEIOMYOMA [None]
  - VOMITING [None]
